FAERS Safety Report 7767046-7 (Version None)
Quarter: 2011Q3

REPORT INFORMATION
  Report Type: 
  Country: None (occurrence: None)
  Receive Date: 20110922
  Receipt Date: 20101102
  Transmission Date: 20111222
  Serious: No
  Sender: FDA-Public Use
  Company Number: US-ASTRAZENECA-2010SE52352

PATIENT
  Age: 18364 Day
  Sex: Female
  Weight: 49 kg

DRUGS (2)
  1. SEROQUEL XR [Suspect]
     Indication: BIPOLAR DISORDER
     Dosage: DAILY
     Route: 048
     Dates: start: 20101001
  2. SEROQUEL XR [Suspect]
     Indication: DEPRESSION
     Dosage: DAILY
     Route: 048
     Dates: start: 20101001

REACTIONS (3)
  - SLEEP DISORDER [None]
  - DRUG DOSE OMISSION [None]
  - DEPRESSION [None]
